FAERS Safety Report 6521050-5 (Version None)
Quarter: 2009Q4

REPORT INFORMATION
  Report Type: 
  Country: None (occurrence: None)
  Receive Date: 20091229
  Receipt Date: 20091223
  Transmission Date: 20100525
  Serious: Yes (Hospitalization)
  Sender: FDA-Public Use
  Company Number: FR-ABBOTT-07P-056-0367670-02

PATIENT
  Sex: Female

DRUGS (8)
  1. HUMIRA [Suspect]
     Indication: RHEUMATOID ARTHRITIS
     Route: 058
     Dates: start: 20040201, end: 20060109
  2. COMMERCIAL HUMIRA [Concomitant]
     Indication: RHEUMATOID ARTHRITIS
     Route: 058
     Dates: start: 20031020, end: 20040201
  3. ANTI VITAMIN K [Concomitant]
     Indication: PULMONARY EMBOLISM
     Dates: start: 20060210
  4. CORTANCYL [Concomitant]
     Indication: DRUG USE FOR UNKNOWN INDICATION
  5. SPECIAFOLDINE [Concomitant]
     Indication: DRUG USE FOR UNKNOWN INDICATION
  6. XALATAN [Concomitant]
     Indication: DRUG USE FOR UNKNOWN INDICATION
  7. TARDYFERON [Concomitant]
     Indication: DRUG USE FOR UNKNOWN INDICATION
  8. VITAMIN B12 AMINO [Concomitant]
     Indication: DRUG USE FOR UNKNOWN INDICATION

REACTIONS (8)
  - ABDOMINAL WALL HAEMATOMA [None]
  - BLOOD PRESSURE DECREASED [None]
  - DEEP VEIN THROMBOSIS [None]
  - ELECTROCARDIOGRAM T WAVE AMPLITUDE DECREASED [None]
  - KERATITIS HERPETIC [None]
  - PULMONARY EMBOLISM [None]
  - SINUS TACHYCARDIA [None]
  - TRICUSPID VALVE INCOMPETENCE [None]
